FAERS Safety Report 4539918-8 (Version None)
Quarter: 2004Q4

REPORT INFORMATION
  Report Type: 
  Country: None (occurrence: None)
  Receive Date: 20041223
  Receipt Date: 20041210
  Transmission Date: 20050328
  Serious: Yes (Other)
  Sender: FDA-Public Use
  Company Number: 430004N04FRA

PATIENT
  Age: 19 Year
  Sex: Female

DRUGS (3)
  1. MITOXANTRONE [Suspect]
     Indication: MULTIPLE SCLEROSIS
     Dosage: 15.26 MG, 1 IN 1 DAYS, INTRAVENOUS
     Route: 042
     Dates: start: 20041109, end: 20041109
  2. PAROXETINE HYDROCHLORIDE [Concomitant]
  3. BUSPIRONE HCL [Concomitant]

REACTIONS (5)
  - HAEMOGLOBIN DECREASED [None]
  - LEUKOPENIA [None]
  - LYMPHOPENIA [None]
  - NEUTROPENIA [None]
  - PLATELET COUNT DECREASED [None]
